FAERS Safety Report 5240468-4 (Version None)
Quarter: 2007Q1

REPORT INFORMATION
  Report Type: 
  Country: None (occurrence: None)
  Receive Date: 20061208
  Receipt Date: 20060418
  Transmission Date: 20070707
  Serious: Yes (Other)
  Sender: FDA-Public Use
  Company Number: 2006UW06764

PATIENT
  Age: 69 Year
  Sex: Female
  Weight: 84.8226 kg

DRUGS (13)
  1. CRESTOR [Suspect]
     Dates: start: 20050101, end: 20051201
  2. BYETTA [Suspect]
     Indication: DIABETES MELLITUS NON-INSULIN-DEPENDENT
     Dosage: 10 UG BID SQ
     Route: 058
     Dates: start: 20050601
  3. DIOVAN HCT [Concomitant]
  4. METFORMIN HCL [Concomitant]
  5. NORVASC [Concomitant]
  6. PROVIGIL [Concomitant]
  7. CHLORAZEPAM [Concomitant]
  8. BUDEPRION [Concomitant]
  9. NEXIUM [Concomitant]
  10. SINGULAIR [Concomitant]
  11. VERAPAMIL [Concomitant]
  12. CYMBALTA [Concomitant]
  13. ADVAIR DISKUS 100/50 [Concomitant]

REACTIONS (3)
  - FALL [None]
  - HYPOTONIA [None]
  - MUSCULAR WEAKNESS [None]
